FAERS Safety Report 9639304 (Version 1)
Quarter: 2013Q4

REPORT INFORMATION
  Report Type: Spontaneous
  Country: GB (occurrence: GB)
  Receive Date: 20131022
  Receipt Date: 20131022
  Transmission Date: 20140711
  Serious: Yes (Disabling)
  Sender: FDA-Public Use
  Company Number: PHHY2013GB115370

PATIENT
  Age: 50 Year
  Sex: Female
  Weight: 80 kg

DRUGS (7)
  1. METHOTREXATE [Suspect]
     Indication: PSORIASIS
     Dosage: 5 DF
     Route: 048
     Dates: start: 20130921
  2. NYTOL [Concomitant]
  3. AMITRIPTYLINE [Concomitant]
  4. VENAXX [Concomitant]
  5. DOMPERIDON//DOMPERIDONE [Concomitant]
  6. OMEPRAZOLE [Concomitant]
  7. ORLISTAT [Concomitant]

REACTIONS (2)
  - Chills [Not Recovered/Not Resolved]
  - Pain [Not Recovered/Not Resolved]
